FAERS Safety Report 6167101-1 (Version None)
Quarter: 2009Q2

REPORT INFORMATION
  Report Type: 
  Country: None (occurrence: None)
  Receive Date: 20090424
  Receipt Date: 20090410
  Transmission Date: 20091009
  Serious: Yes (Hospitalization)
  Sender: FDA-Public Use
  Company Number: FR-CELGENEUS-056-20785-08111017

PATIENT
  Sex: Female
  Weight: 45 kg

DRUGS (5)
  1. THALIDOMIDE [Suspect]
     Indication: MULTIPLE MYELOMA
     Route: 048
     Dates: end: 20070501
  2. THALIDOMIDE [Suspect]
     Route: 048
     Dates: start: 20081119, end: 20081121
  3. DEXAMETHASONE [Concomitant]
     Indication: MULTIPLE MYELOMA
     Route: 065
  4. MORPHINE [Concomitant]
     Indication: PAIN
     Route: 065
  5. TIENAM [Concomitant]
     Indication: DRUG USE FOR UNKNOWN INDICATION
     Route: 065
     Dates: start: 20081126

REACTIONS (10)
  - ATRIAL FIBRILLATION [None]
  - CONFUSIONAL STATE [None]
  - CONVULSION [None]
  - EMBOLIC STROKE [None]
  - LUNG INFECTION [None]
  - NEUROPATHY PERIPHERAL [None]
  - RENAL FAILURE [None]
  - RESPIRATORY FAILURE [None]
  - SOMNOLENCE [None]
  - URINARY TRACT INFECTION [None]
